FAERS Safety Report 17272081 (Version 3)
Quarter: 2021Q2

REPORT INFORMATION
  Report Type: Spontaneous
  Country: US (occurrence: US)
  Receive Date: 20200115
  Receipt Date: 20210401
  Transmission Date: 20210716
  Serious: Yes (Life-Threatening, Hospitalization)
  Sender: FDA-Public Use
  Company Number: US-BIOVITRUM-2020US0094

PATIENT
  Age: 40 Year
  Sex: Female

DRUGS (2)
  1. DEGARELIX [Concomitant]
     Active Substance: DEGARELIX
  2. PALIFERMIN [Suspect]
     Active Substance: PALIFERMIN
     Indication: PRODUCT USED FOR UNKNOWN INDICATION

REACTIONS (1)
  - Sepsis [Unknown]

NARRATIVE: CASE EVENT DATE: 20191226
